FAERS Safety Report 24185768 (Version 1)
Quarter: 2024Q3

REPORT INFORMATION
  Report Type: Report from Study
  Country: CA (occurrence: CA)
  Receive Date: 20240807
  Receipt Date: 20240807
  Transmission Date: 20241016
  Serious: Yes (Other)
  Sender: VERITY PHARMACEUTICALS
  Company Number: CA-VER-202400365

PATIENT
  Age: 71 Year
  Sex: Male

DRUGS (7)
  1. TRELSTAR [Suspect]
     Active Substance: TRIPTORELIN PAMOATE
     Indication: Prostate cancer
     Dosage: 0.125 MILLIGRAM(S),11.25 MILLIGRAM(S), 1 IN 3 MONTH, POWDER FOR PROLONGED-RELEASE SUSPENSION FOR INJ
     Route: 030
     Dates: start: 20240118, end: 20240118
  2. TRELSTAR [Suspect]
     Active Substance: TRIPTORELIN PAMOATE
     Indication: Prostate cancer
     Dosage: 0.125 MILLIGRAM(S),11.25 MILLIGRAM(S), 1 IN 3 MONTH, POWDER FOR PROLONGED-RELEASE SUSPENSION FOR INJ
     Route: 030
     Dates: start: 20240418, end: 20240418
  3. TRELSTAR [Suspect]
     Active Substance: TRIPTORELIN PAMOATE
     Indication: Prostate cancer
     Dosage: 0.125 MILLIGRAM(S),11.25 MILLIGRAM(S), 1 IN 3 MONTH, POWDER FOR PROLONGED-RELEASE SUSPENSION FOR INJ
     Route: 030
     Dates: start: 20221116, end: 20221116
  4. TRELSTAR [Suspect]
     Active Substance: TRIPTORELIN PAMOATE
     Indication: Prostate cancer
     Dosage: 0.125 MILLIGRAM(S),11.25 MILLIGRAM(S), 1 IN 3 MONTH, POWDER FOR PROLONGED-RELEASE SUSPENSION FOR INJ
     Route: 030
     Dates: start: 20230215, end: 20230215
  5. TRELSTAR [Suspect]
     Active Substance: TRIPTORELIN PAMOATE
     Indication: Prostate cancer
     Dosage: 0.125 MILLIGRAM(S),11.25 MILLIGRAM(S), 1 IN 3 MONTH, POWDER FOR PROLONGED-RELEASE SUSPENSION FOR INJ
     Route: 030
     Dates: start: 20230511, end: 20230511
  6. TRELSTAR [Suspect]
     Active Substance: TRIPTORELIN PAMOATE
     Indication: Prostate cancer
     Dosage: 0.125 MILLIGRAM(S),11.25 MILLIGRAM(S), 1 IN 3 MONTH, POWDER FOR PROLONGED-RELEASE SUSPENSION FOR INJ
     Route: 030
     Dates: start: 20231019, end: 20231019
  7. TRELSTAR [Suspect]
     Active Substance: TRIPTORELIN PAMOATE
     Indication: Prostate cancer
     Dosage: 0.125 MILLIGRAM(S),11.25 MILLIGRAM(S), 1 IN 3 MONTH, POWDER FOR PROLONGED-RELEASE SUSPENSION FOR INJ
     Route: 030
     Dates: start: 20240718, end: 20240718

REACTIONS (2)
  - Inappropriate schedule of product administration [Recovered/Resolved]
  - Parkinson^s disease [Not Recovered/Not Resolved]

NARRATIVE: CASE EVENT DATE: 20230511
